FAERS Safety Report 10378238 (Version 5)
Quarter: 2015Q1

REPORT INFORMATION
  Report Type: Spontaneous
  Country: US (occurrence: US)
  Receive Date: 20140812
  Receipt Date: 20150324
  Transmission Date: 20150720
  Serious: Yes (Hospitalization, Other)
  Sender: FDA-Public Use
  Company Number: US-PFIZER INC-2014221427

PATIENT
  Age: 78 Year
  Sex: Female
  Weight: 72 kg

DRUGS (4)
  1. SODIUM BICARBONATE. [Suspect]
     Active Substance: SODIUM BICARBONATE
     Indication: HYPOTHYROIDISM
     Dosage: UNK UNK, 1X/DAY
     Route: 048
     Dates: start: 2014, end: 2014
  2. LEVOXYL [Suspect]
     Active Substance: LEVOTHYROXINE SODIUM
     Indication: HYPOTHYROIDISM
     Dosage: 0.025 MG, 1X/DAY
     Route: 048
     Dates: start: 2014, end: 20140718
  3. LEVOXYL [Suspect]
     Active Substance: LEVOTHYROXINE SODIUM
     Indication: THYROID DISORDER
     Dosage: 0.025 UNK, UNK
     Dates: start: 2001, end: 20140718
  4. CALCIUM [Suspect]
     Active Substance: CALCIUM
     Indication: HYPOTHYROIDISM
     Dosage: UNK, 1X/DAY
     Route: 048

REACTIONS (7)
  - Polyuria [Unknown]
  - Product quality issue [Not Recovered/Not Resolved]
  - Weight decreased [Not Recovered/Not Resolved]
  - Cardiac disorder [Not Recovered/Not Resolved]
  - Dehydration [Not Recovered/Not Resolved]
  - Reaction to drug excipients [Unknown]
  - Pollakiuria [Unknown]

NARRATIVE: CASE EVENT DATE: 20040208
